FAERS Safety Report 9465031 (Version 1)
Quarter: 2013Q3

REPORT INFORMATION
  Report Type: Spontaneous
  Country: US (occurrence: US)
  Receive Date: 20130819
  Receipt Date: 20130819
  Transmission Date: 20140515
  Serious: Yes (Other)
  Sender: FDA-Public Use
  Company Number: US-TEVA-426326USA

PATIENT
  Age: 51 Year
  Sex: Male
  Weight: 75 kg

DRUGS (1)
  1. FOSPHENYTOIN [Suspect]
     Indication: CONVULSION
     Dosage: DOSE TITRATED FOR 75KG WEIGHT
     Route: 040

REACTIONS (3)
  - Cerebellar atrophy [Unknown]
  - Nystagmus [Recovered/Resolved]
  - Tremor [Unknown]
